FAERS Safety Report 7860753-7 (Version None)
Quarter: 2011Q4

REPORT INFORMATION
  Report Type: 
  Country: None (occurrence: None)
  Receive Date: 20111027
  Receipt Date: 20111018
  Transmission Date: 20120403
  Serious: Yes (Hospitalization, Disabling, Other)
  Sender: FDA-Public Use
  Company Number: US-BAYER-2010-006648

PATIENT
  Age: 35 Year
  Sex: Female
  Weight: 84.68 kg

DRUGS (5)
  1. YAZ [Suspect]
     Indication: PREMENSTRUAL SYNDROME
  2. LEXAPRO [Concomitant]
     Route: 048
  3. ANTIBIOTICS [Concomitant]
     Dosage: UNK
     Dates: start: 20000101
  4. IBUPROFEN [Concomitant]
     Dosage: UNK UNK, PRN
  5. YAZ [Suspect]
     Indication: CONTRACEPTION
     Dosage: UNK
     Route: 048
     Dates: start: 20080618, end: 20080903

REACTIONS (9)
  - TRANSVERSE SINUS THROMBOSIS [None]
  - PAIN [None]
  - MIGRAINE [None]
  - CEREBRAL INFARCTION [None]
  - INJURY [None]
  - CEREBROVASCULAR ACCIDENT [None]
  - ANXIETY [None]
  - DEEP VEIN THROMBOSIS [None]
  - HAEMORRHAGIC TRANSFORMATION STROKE [None]
